FAERS Safety Report 7808086-9 (Version None)
Quarter: 2011Q4

REPORT INFORMATION
  Report Type: 
  Country: None (occurrence: None)
  Receive Date: 20111011
  Receipt Date: 20111007
  Transmission Date: 20120403
  Serious: Yes (Other)
  Sender: FDA-Public Use
  Company Number: GB-AMGEN-GBRSP2011052095

PATIENT
  Age: 81 Year
  Sex: Male
  Weight: 83.5 kg

DRUGS (1)
  1. NPLATE [Suspect]
     Indication: IDIOPATHIC THROMBOCYTOPENIC PURPURA
     Dosage: 3 MUG/KG, UNK
     Route: 058
     Dates: start: 20110810

REACTIONS (4)
  - LETHARGY [None]
  - SOMNOLENCE [None]
  - FATIGUE [None]
  - LIVER FUNCTION TEST ABNORMAL [None]
